FAERS Safety Report 7048857-2 (Version None)
Quarter: 2010Q4

REPORT INFORMATION
  Report Type: 
  Country: None (occurrence: None)
  Receive Date: 20101018
  Receipt Date: 20101007
  Transmission Date: 20110411
  Serious: Yes (Death, Other)
  Sender: FDA-Public Use
  Company Number: US-JNJFOC-20101002599

PATIENT
  Age: 59 Year
  Sex: Male

DRUGS (4)
  1. REMICADE [Suspect]
     Indication: COLITIS ULCERATIVE
     Dosage: INITIAL DOSE
     Route: 042
  2. AZATHIOPRINE [Concomitant]
     Indication: COLITIS ULCERATIVE
  3. STEROIDS NOS [Concomitant]
     Indication: COLITIS ULCERATIVE
  4. PENTASA [Concomitant]
     Indication: COLITIS ULCERATIVE

REACTIONS (4)
  - ATRIAL FIBRILLATION [None]
  - DEATH [None]
  - INTESTINAL PERFORATION [None]
  - PANCYTOPENIA [None]
